FAERS Safety Report 6919785-5 (Version None)
Quarter: 2010Q3

REPORT INFORMATION
  Report Type: 
  Country: None (occurrence: None)
  Receive Date: 20100810
  Receipt Date: 20100810
  Transmission Date: 20110219
  Serious: Yes (Disabling, Other)
  Sender: FDA-Public Use
  Company Number: None

PATIENT
  Age: 58 Year
  Sex: Female
  Weight: 79.3795 kg

DRUGS (3)
  1. LOVASTATIN [Suspect]
     Indication: BACK PAIN
     Dosage: DAILY
  2. LOVASTATIN [Suspect]
     Indication: BLOOD CHOLESTEROL INCREASED
     Dosage: DAILY
  3. LOVASTATIN [Suspect]
     Indication: MUSCULAR WEAKNESS
     Dosage: DAILY

REACTIONS (2)
  - BACK PAIN [None]
  - MUSCULAR WEAKNESS [None]
